FAERS Safety Report 20950301 (Version 1)
Quarter: 2022Q2

REPORT INFORMATION
  Report Type: Spontaneous
  Country: HR (occurrence: HR)
  Receive Date: 20220613
  Receipt Date: 20220613
  Transmission Date: 20220721
  Serious: Yes (Life-Threatening, Other)
  Sender: FDA-Public Use
  Company Number: HR-JNJFOC-20220620666

PATIENT
  Sex: Male

DRUGS (1)
  1. YONDELIS [Suspect]
     Active Substance: TRABECTEDIN
     Indication: Soft tissue sarcoma
     Route: 042
     Dates: start: 20220523

REACTIONS (3)
  - Rhabdomyolysis [Unknown]
  - Pancytopenia [Unknown]
  - Hepatic lesion [Unknown]
